FAERS Safety Report 7344716-6 (Version None)
Quarter: 2011Q1

REPORT INFORMATION
  Report Type: 
  Country: None (occurrence: None)
  Receive Date: 20110310
  Receipt Date: 20110225
  Transmission Date: 20110831
  Serious: Yes (Other)
  Sender: FDA-Public Use
  Company Number: PHHY2011US15983

PATIENT
  Age: 62 Year
  Sex: Female

DRUGS (4)
  1. DIOVAN [Suspect]
     Dosage: 160 MG, UNK
  2. ZETIA [Concomitant]
     Dosage: 10 MG, UNK
  3. PLAVIX [Concomitant]
     Dosage: 75 MG, UNK
  4. SYNTHROID [Concomitant]
     Dosage: 100 UG, UNK

REACTIONS (6)
  - COUGH [None]
  - SKIN MASS [None]
  - THROMBOSIS [None]
  - OEDEMA PERIPHERAL [None]
  - RASH [None]
  - BACK PAIN [None]
